FAERS Safety Report 22598880 (Version 1)
Quarter: 2023Q2

REPORT INFORMATION
  Report Type: Spontaneous
  Country: CA (occurrence: CA)
  Receive Date: 20230614
  Receipt Date: 20230614
  Transmission Date: 20230722
  Serious: Yes (Other)
  Sender: FDA-Public Use
  Company Number: CA-ROCHE-3274089

PATIENT
  Age: 50 Year
  Sex: Female

DRUGS (12)
  1. CAPECITABINE [Suspect]
     Active Substance: CAPECITABINE
     Indication: Metastases to meninges
     Route: 048
  2. CAPECITABINE [Suspect]
     Active Substance: CAPECITABINE
     Indication: Breast cancer metastatic
     Route: 048
  3. CAPECITABINE [Suspect]
     Active Substance: CAPECITABINE
     Indication: Invasive lobular breast carcinoma
     Route: 048
  4. CYTARABINE [Suspect]
     Active Substance: CYTARABINE
     Indication: Breast cancer metastatic
     Dosage: POWDER FOR SOLUTION
     Route: 037
  5. CYTARABINE [Suspect]
     Active Substance: CYTARABINE
     Indication: Metastases to meninges
     Dosage: POWDER FOR SOLUTION
     Route: 037
  6. CYTARABINE [Suspect]
     Active Substance: CYTARABINE
     Indication: Invasive lobular breast carcinoma
     Dosage: POWDER FOR SOLUTION
     Route: 037
  7. DEXAMETHASONE [Suspect]
     Active Substance: DEXAMETHASONE
     Indication: Metastases to meninges
  8. DEXAMETHASONE [Suspect]
     Active Substance: DEXAMETHASONE
     Indication: Breast cancer metastatic
  9. METHOTREXATE [Suspect]
     Active Substance: METHOTREXATE
     Indication: Invasive lobular breast carcinoma
     Route: 037
  10. METHOTREXATE [Suspect]
     Active Substance: METHOTREXATE
     Indication: Metastases to meninges
     Route: 037
  11. METHOTREXATE [Suspect]
     Active Substance: METHOTREXATE
     Indication: Breast cancer metastatic
     Route: 037
  12. TAMOXIFEN [Concomitant]
     Active Substance: TAMOXIFEN

REACTIONS (2)
  - Muscular weakness [Unknown]
  - Drug ineffective [Unknown]
